FAERS Safety Report 12650992 (Version 1)
Quarter: 2016Q3

REPORT INFORMATION
  Report Type: Spontaneous
  Country: US (occurrence: None)
  Receive Date: 20160812
  Receipt Date: 20160812
  Transmission Date: 20161109
  Serious: No
  Sender: FDA-Public Use
  Company Number: None

PATIENT
  Age: 47 Year
  Sex: Female
  Weight: 72.58 kg

DRUGS (5)
  1. MULTI VITAMIN [Concomitant]
     Active Substance: VITAMINS
  2. CIPROFLOXACIN, 500 MG [Suspect]
     Active Substance: CIPROFLOXACIN
     Indication: URINARY TRACT INFECTION
     Route: 048
     Dates: start: 20160809, end: 20160810
  3. BENAZAPRIL [Concomitant]
  4. IRON [Concomitant]
     Active Substance: IRON
  5. SINGULAIR [Concomitant]
     Active Substance: MONTELUKAST SODIUM

REACTIONS (5)
  - Weight bearing difficulty [None]
  - Pain in extremity [None]
  - Paraesthesia [None]
  - Middle insomnia [None]
  - Arthropathy [None]

NARRATIVE: CASE EVENT DATE: 20160810
